FAERS Safety Report 4435906-0 (Version None)
Quarter: 2004Q3

REPORT INFORMATION
  Report Type: 
  Country: None (occurrence: None)
  Receive Date: 20040726
  Receipt Date: 20040301
  Transmission Date: 20050211
  Serious: No
  Sender: FDA-Public Use
  Company Number: USA040360626

PATIENT
  Age: 80 Year
  Sex: Female

DRUGS (11)
  1. FORTEO [Suspect]
     Indication: OSTEOPOROSIS
     Dosage: UNK
     Route: 065
     Dates: start: 20031006
  2. COUMADIN [Concomitant]
  3. KLONOPIN [Concomitant]
  4. NEURONTIN [Concomitant]
  5. LEXAPRO [Concomitant]
  6. TRAZODONE HCL [Concomitant]
  7. BEXTRA [Concomitant]
  8. MELATONIN [Concomitant]
  9. CITRACAL (CALCIUM CITRATE) [Concomitant]
  10. ULTRAM [Concomitant]
  11. PROVIGIL [Concomitant]

REACTIONS (2)
  - ALOPECIA [None]
  - PNEUMONIA [None]
